FAERS Safety Report 7790402-8 (Version None)
Quarter: 2011Q3

REPORT INFORMATION
  Report Type: 
  Country: None (occurrence: None)
  Receive Date: 20110930
  Receipt Date: 20110921
  Transmission Date: 20111222
  Serious: Yes (Other)
  Sender: FDA-Public Use
  Company Number: CA-JNJFOC-20110909924

PATIENT
  Sex: Male
  Weight: 72 kg

DRUGS (2)
  1. CHOLESTYRAMINE [Concomitant]
  2. REMICADE [Suspect]
     Indication: CROHN'S DISEASE
     Route: 042
     Dates: start: 20100519, end: 20110921

REACTIONS (1)
  - ABDOMINAL ADHESIONS [None]
